FAERS Safety Report 6306549-9 (Version None)
Quarter: 2009Q3

REPORT INFORMATION
  Report Type: 
  Country: None (occurrence: None)
  Receive Date: 20090812
  Receipt Date: 20090804
  Transmission Date: 20100115
  Serious: Yes (Other)
  Sender: FDA-Public Use
  Company Number: US-MERCK-0903USA04196

PATIENT
  Age: 88 Year
  Sex: Female

DRUGS (8)
  1. FOSAMAX [Suspect]
     Indication: OSTEOPOROSIS
     Route: 048
     Dates: start: 19990101, end: 20060801
  2. FOSAMAX [Suspect]
     Route: 048
     Dates: end: 20080101
  3. FOSAMAX [Suspect]
     Indication: OSTEOPENIA
     Route: 048
     Dates: start: 19990101, end: 20060801
  4. FOSAMAX [Suspect]
     Route: 048
     Dates: end: 20080101
  5. ACTONEL [Concomitant]
     Indication: OSTEOPOROSIS
     Route: 048
     Dates: start: 20040101, end: 20060101
  6. ACTONEL [Concomitant]
     Route: 048
     Dates: start: 20060101, end: 20070401
  7. ACTONEL [Concomitant]
     Indication: OSTEOPENIA
     Route: 048
     Dates: start: 20040101, end: 20060101
  8. ACTONEL [Concomitant]
     Route: 048
     Dates: start: 20060101, end: 20070401

REACTIONS (14)
  - ADVERSE DRUG REACTION [None]
  - ANAEMIA [None]
  - CELLULITIS [None]
  - GASTRIC DISORDER [None]
  - JAW DISORDER [None]
  - NERVOUS SYSTEM DISORDER [None]
  - OSTEOMYELITIS [None]
  - OSTEONECROSIS [None]
  - RASH [None]
  - SINUS CONGESTION [None]
  - SKELETAL INJURY [None]
  - TEMPOROMANDIBULAR JOINT SYNDROME [None]
  - TOOTH ABSCESS [None]
  - TOOTH DISORDER [None]
